FAERS Safety Report 24438095 (Version 1)
Quarter: 2024Q4

REPORT INFORMATION
  Report Type: Spontaneous
  Country: US (occurrence: US)
  Receive Date: 20241015
  Receipt Date: 20241015
  Transmission Date: 20250114
  Serious: Yes (Other)
  Sender: BRISTOL-MYERS SQUIBB COMPANY
  Company Number: US-BRISTOL-MYERS SQUIBB COMPANY-2024-160127

PATIENT
  Age: 68 Year
  Sex: Female

DRUGS (2)
  1. OPDIVO [Suspect]
     Active Substance: NIVOLUMAB
     Indication: Neuroendocrine carcinoma
     Dosage: 240 EVERY 2 WEEKS
     Dates: start: 20240705, end: 20240830
  2. IPILIMUMAB [Suspect]
     Active Substance: IPILIMUMAB
     Indication: Neuroendocrine carcinoma
     Dosage: 90 FOR 6 WEEKS
     Dates: start: 20240705, end: 20240830

REACTIONS (2)
  - Therapy non-responder [Unknown]
  - Off label use [Unknown]
